FAERS Safety Report 8218087 (Version 5)
Quarter: 2015Q4

REPORT INFORMATION
  Report Type: Report from Study
  Country: SI (occurrence: SI)
  Receive Date: 20111101
  Receipt Date: 20151106
  Transmission Date: 20160305
  Serious: Yes (Death)
  Sender: FDA-Public Use
  Company Number: SI-AMGEN-SVNCT2011055586

PATIENT
  Age: 48 Year
  Sex: Male

DRUGS (13)
  1. CINACALCET HCL [Suspect]
     Active Substance: CINACALCET HYDROCHLORIDE
     Indication: HYPERPARATHYROIDISM SECONDARY
     Dosage: 60 MG, QD
     Route: 048
     Dates: start: 20110128
  2. SODIUM BICARBONATE. [Concomitant]
     Active Substance: SODIUM BICARBONATE
     Dosage: 2 G, UNK
  3. CALCIUM CARBONATE. [Concomitant]
     Active Substance: CALCIUM CARBONATE
     Dosage: 3 G, UNK
  4. FOSRENOL [Concomitant]
     Active Substance: LANTHANUM CARBONATE
     Dosage: 750 UNK, UNK
  5. TULIP [Concomitant]
     Active Substance: ATORVASTATIN
  6. CARVEDILOL. [Concomitant]
     Active Substance: CARVEDILOL
  7. ZEMPLAR [Concomitant]
     Active Substance: PARICALCITOL
     Dosage: 2 G, UNK
  8. ULTOP [Concomitant]
  9. SANVAL [Concomitant]
     Active Substance: ZOLPIDEM TARTRATE
     Dosage: 5 MG, UNK
  10. LACIPIL [Concomitant]
     Active Substance: LACIDIPINE
     Dosage: 4 MG, UNK
  11. COMPLEX B [Concomitant]
     Active Substance: CALCIUM PANTOTHENATE\CYANOCOBALAMIN\NIACINAMIDE\PYRIDOXINE HYDROCHLORIDE\RIBOFLAVIN\THIAMINE MONONITRATE
  12. PRITOR [Concomitant]
     Active Substance: TELMISARTAN
     Dosage: 80 MG, BID
  13. ALOPURINOL [Concomitant]
     Active Substance: ALLOPURINOL

REACTIONS (1)
  - Sudden cardiac death [Fatal]

NARRATIVE: CASE EVENT DATE: 20110801
